FAERS Safety Report 5196386-3 (Version None)
Quarter: 2006Q4

REPORT INFORMATION
  Report Type: 
  Country: None (occurrence: None)
  Receive Date: 20061222
  Receipt Date: 20061109
  Transmission Date: 20070319
  Serious: Yes (Death)
  Sender: FDA-Public Use
  Company Number: MEDI-0005057

PATIENT
  Age: 15 Month
  Sex: Female

DRUGS (1)
  1. SYNAGIS [Suspect]
     Indication: ANTIVIRAL PROPHYLAXIS
     Dosage: 100 MG; INTRAMUSCULAR
     Route: 030
     Dates: start: 20051014, end: 20060327

REACTIONS (1)
  - DEATH [None]
